FAERS Safety Report 8463155-8 (Version None)
Quarter: 2012Q2

REPORT INFORMATION
  Report Type: 
  Country: None (occurrence: None)
  Receive Date: 20120323
  Receipt Date: 20111129
  Transmission Date: 20120825
  Serious: Yes (Other)
  Sender: FDA-Public Use
  Company Number: 163-21880-11092764

PATIENT
  Age: 87 Year
  Sex: Female

DRUGS (8)
  1. DEXAMETHASONE [Concomitant]
  2. AREDIA [Concomitant]
  3. ASPIRIN [Concomitant]
  4. REVLIMID [Suspect]
     Indication: MULTIPLE MYELOMA
     Dosage: 25 MG, QD X 21 D, PO; 25  MG, QD X 21 D, PO
     Route: 048
     Dates: start: 20100621
  5. LEVAQUIN [Concomitant]
  6. MULTIVITAMINS (MULTIVITAMINS0 [Concomitant]
  7. COUMADIN [Concomitant]
  8. MOBIC [Concomitant]

REACTIONS (1)
  - WHITE BLOOD CELL COUNT DECREASED [None]
